FAERS Safety Report 9400076 (Version 1)
Quarter: 2013Q2

REPORT INFORMATION
  Report Type: Spontaneous
  Country: US (occurrence: BR)
  Receive Date: 20130605
  Receipt Date: 20130605
  Transmission Date: 20140414
  Serious: Yes (Death)
  Sender: FDA-Public Use
  Company Number: BR-20130023

PATIENT
  Sex: Male

DRUGS (2)
  1. DOTAREM [Suspect]
     Indication: NUCLEAR MAGNETIC RESONANCE IMAGING
     Dates: start: 20130128, end: 20130128
  2. SALINE (SODIUM CHLORIDE)(SODIUKM CHLORIDE) [Concomitant]

REACTIONS (2)
  - Chemical poisoning [None]
  - Medication error [None]
